FAERS Safety Report 5264647-5 (Version None)
Quarter: 2007Q1

REPORT INFORMATION
  Report Type: 
  Country: None (occurrence: None)
  Receive Date: 20070314
  Receipt Date: 20070305
  Transmission Date: 20070707
  Serious: Yes (Death, Hospitalization)
  Sender: FDA-Public Use
  Company Number: PHRM2007FR00834

PATIENT
  Age: 96 Year
  Sex: Female
  Weight: 55 kg

DRUGS (11)
  1. MODOPAR [Concomitant]
     Dosage: 1 DF, TID
     Route: 048
  2. TRIVASTAL [Concomitant]
     Dosage: 20 MG, TID
     Route: 048
     Dates: end: 20061113
  3. DAFLON [Concomitant]
     Dosage: 1000 MG, QD
     Route: 048
  4. METEOXANE [Concomitant]
     Dosage: 2 DF, TID
     Dates: end: 20061108
  5. MOVICOL [Concomitant]
     Dosage: UNK, PRN
     Route: 048
     Dates: end: 20061108
  6. SERESTA [Concomitant]
     Route: 048
     Dates: end: 20061113
  7. KARDEGIC [Suspect]
     Dosage: 75 MG, QD
     Route: 048
     Dates: end: 20061108
  8. ESOMEPRAZOLE MAGNESIUM [Suspect]
     Dosage: 1 DF, CONT (SYNRINGE PUMP)
     Route: 042
     Dates: start: 20061108, end: 20061108
  9. ESOMEPRAZOLE MAGNESIUM [Suspect]
     Dosage: 40 MG, BID
     Route: 042
     Dates: start: 20061109, end: 20061113
  10. ESOMEPRAZOLE MAGNESIUM [Suspect]
     Dosage: 40 MG, QD
     Route: 048
     Dates: start: 20061113
  11. VOLTAREN [Suspect]
     Dosage: 75 MG, QD
     Route: 048
     Dates: end: 20061108

REACTIONS (18)
  - ASTHENIA [None]
  - BLOOD GLUCOSE INCREASED [None]
  - BLOOD UREA INCREASED [None]
  - C-REACTIVE PROTEIN INCREASED [None]
  - CONFUSIONAL STATE [None]
  - HAEMATEMESIS [None]
  - HALLUCINATION, VISUAL [None]
  - HYPERTONIA [None]
  - HYPOGLYCAEMIC COMA [None]
  - HYPONATRAEMIA [None]
  - MELAENA [None]
  - MICROCYTIC ANAEMIA [None]
  - PALLOR [None]
  - PEPTIC ULCER HAEMORRHAGE [None]
  - PROTEIN TOTAL DECREASED [None]
  - PSYCHOMOTOR SKILLS IMPAIRED [None]
  - PYREXIA [None]
  - STATUS EPILEPTICUS [None]
